FAERS Safety Report 11078337 (Version 2)
Quarter: 2015Q2

REPORT INFORMATION
  Report Type: Spontaneous
  Country: JP (occurrence: JP)
  Receive Date: 20150430
  Receipt Date: 20150622
  Transmission Date: 20150821
  Serious: Yes (Hospitalization)
  Sender: FDA-Public Use
  Company Number: JP-UCBSA-2015006439

PATIENT
  Age: 87 Year
  Sex: Female

DRUGS (26)
  1. KEPPRA [Suspect]
     Active Substance: LEVETIRACETAM
     Dosage: 1000 MG, ONCE DAILY (QD)
     Route: 048
     Dates: start: 20141230, end: 20150123
  2. EXCEGRAN [Suspect]
     Active Substance: ZONISAMIDE
     Dosage: DAILY DOSE: 100 MG
     Route: 048
     Dates: start: 20150119, end: 20150119
  3. RIVOTRIL [Suspect]
     Active Substance: CLONAZEPAM
     Indication: PRODUCT USED FOR UNKNOWN INDICATION
     Dosage: DAILY DOSE: 1 MG
     Route: 048
     Dates: start: 20150108, end: 20150115
  4. RIVOTRIL [Suspect]
     Active Substance: CLONAZEPAM
     Dosage: DAILY DOSE: 1.5 MG
     Route: 048
     Dates: start: 20150116, end: 20150120
  5. PREDNISOLONE. [Concomitant]
     Active Substance: PREDNISOLONE
     Dosage: 15MG/DAY
     Dates: start: 20150129, end: 2015
  6. PREDNISOLONE. [Concomitant]
     Active Substance: PREDNISOLONE
     Dosage: 10MG/DAY
     Dates: start: 20150203, end: 201502
  7. PREDNISOLONE. [Concomitant]
     Active Substance: PREDNISOLONE
     Dosage: 2.5 MG/DAY
     Dates: start: 20150205, end: 20150208
  8. KEPPRA [Suspect]
     Active Substance: LEVETIRACETAM
     Indication: EPILEPSY
     Dosage: 500 MG, ONCE DAILY (QD)
     Route: 048
     Dates: start: 20141229, end: 20141229
  9. RIVOTRIL [Suspect]
     Active Substance: CLONAZEPAM
     Dosage: DAILY DOSE: 0.5 MG
     Route: 048
     Dates: start: 20150121, end: 20150121
  10. PREDNISOLONE. [Concomitant]
     Active Substance: PREDNISOLONE
     Indication: ERYTHEMA
     Dosage: 30 MG/DAY
     Dates: start: 20150124, end: 201501
  11. EXCEGRAN [Suspect]
     Active Substance: ZONISAMIDE
     Dosage: DAILY DOSE: 200 MG
     Route: 048
     Dates: start: 20150117, end: 20150118
  12. EXCEGRAN [Suspect]
     Active Substance: ZONISAMIDE
     Dosage: DAILY DOSE: 200 MG
     Route: 048
     Dates: start: 20150125, end: 20150223
  13. EXCEGRAN [Suspect]
     Active Substance: ZONISAMIDE
     Indication: PRODUCT USED FOR UNKNOWN INDICATION
     Dosage: DAILY DOSE: 100 MG
     Route: 048
     Dates: start: 20150116, end: 20150116
  14. EXCEGRAN [Suspect]
     Active Substance: ZONISAMIDE
     Dosage: DAILY DOSE: 160 MG
     Route: 048
     Dates: start: 20150224
  15. ALEVIATIN [Suspect]
     Active Substance: PHENYTOIN SODIUM
     Indication: EPILEPSY
     Dosage: DAILY DOSE: 100 MG
     Route: 048
     Dates: start: 20141229, end: 20141229
  16. VALACICLOVIR HYDROCHLORIDE [Concomitant]
     Active Substance: VALACYCLOVIR HYDROCHLORIDE
     Indication: HERPES ZOSTER
     Dosage: UNK
     Dates: start: 20150212, end: 20150219
  17. ALEVIATIN [Suspect]
     Active Substance: PHENYTOIN SODIUM
     Dosage: DAILY DOSE: 100 MG
     Route: 048
     Dates: start: 20150116, end: 20150116
  18. DEXAMETHASONE. [Concomitant]
     Active Substance: DEXAMETHASONE
     Dosage: 2 MG
     Dates: start: 20150105, end: 20150106
  19. TOPIRAMATE. [Concomitant]
     Active Substance: TOPIRAMATE
     Indication: ERYTHEMA
     Dosage: UNK
     Dates: start: 20150204
  20. KEPPRA [Suspect]
     Active Substance: LEVETIRACETAM
     Dosage: 500 MG, ONCE DAILY (QD)
     Route: 048
     Dates: start: 20150124, end: 20150124
  21. FEXOFENADINE HYDROCHLORIDE. [Concomitant]
     Active Substance: FEXOFENADINE HYDROCHLORIDE
     Indication: ERYTHEMA
     Dosage: UNK
     Dates: start: 20150119
  22. EXCEGRAN [Suspect]
     Active Substance: ZONISAMIDE
     Dosage: DAILY DOSE: 100 MG
     Route: 048
     Dates: start: 20150124, end: 20150124
  23. ALEVIATIN [Suspect]
     Active Substance: PHENYTOIN SODIUM
     Dosage: DAILY DOSE: 200 MG
     Route: 048
     Dates: start: 20141230, end: 20150115
  24. DEXAMETHASONE. [Concomitant]
     Active Substance: DEXAMETHASONE
     Indication: PRODUCT USED FOR UNKNOWN INDICATION
     Dosage: 4 MG INFUSION
     Dates: start: 20150101, end: 201501
  25. AMINOPHYLLINE HYDRATE [Concomitant]
     Indication: PRODUCT USED FOR UNKNOWN INDICATION
     Dosage: 250 MG INFUSION
     Dates: start: 20150101, end: 20150103
  26. OSELTAMIVIR PHOSPHATE [Concomitant]
     Active Substance: OSELTAMIVIR PHOSPHATE
     Indication: INFLUENZA
     Dosage: UNK
     Dates: start: 20150128

REACTIONS (4)
  - Renal disorder [Not Recovered/Not Resolved]
  - Liver disorder [Recovered/Resolved]
  - Erythema [Recovered/Resolved]
  - Hypothermia [Recovered/Resolved]

NARRATIVE: CASE EVENT DATE: 20150116
